FAERS Safety Report 4493086-X (Version None)
Quarter: 2004Q4

REPORT INFORMATION
  Report Type: 
  Country: None (occurrence: None)
  Receive Date: 20041101
  Receipt Date: 20041020
  Transmission Date: 20050328
  Serious: No
  Sender: FDA-Public Use
  Company Number: 04H-087-0278255-00

PATIENT
  Age: 57 Year
  Sex: Female

DRUGS (12)
  1. PENTAZOCINE LACTATE [Suspect]
     Indication: MALIGNANT PLEURAL EFFUSION
     Dosage: 15 MG, SINGLE DOSE, INTRAMUSCULAR
     Route: 030
     Dates: start: 20030108
  2. PENTAZOCINE LACTATE [Suspect]
     Indication: METASTASES TO LUNG
     Dosage: 15 MG, SINGLE DOSE, INTRAMUSCULAR
     Route: 030
     Dates: start: 20030108
  3. PENTAZOCINE LACTATE [Suspect]
     Indication: METASTASIS
     Dosage: 15 MG, SINGLE DOSE, INTRAMUSCULAR
     Route: 030
     Dates: start: 20030108
  4. HYARON H [Concomitant]
  5. BUFFERIN [Concomitant]
  6. LOXOPROFEN SODIUM [Concomitant]
  7. PAMIDRONATE DISODIUM [Concomitant]
  8. PACLITAXEL [Concomitant]
  9. PAMPLATIN [Concomitant]
  10. ESBERIVEN FORTE [Concomitant]
  11. BLOOD TRASNFUSION [Concomitant]
  12. DICLOFENAC SODIUM [Concomitant]

REACTIONS (13)
  - BLOOD PRESSURE SYSTOLIC INCREASED [None]
  - CARCINOMA [None]
  - CONDITION AGGRAVATED [None]
  - DISSEMINATED INTRAVASCULAR COAGULATION [None]
  - DIZZINESS [None]
  - DRUG INEFFECTIVE [None]
  - FEELING ABNORMAL [None]
  - GENERAL PHYSICAL HEALTH DETERIORATION [None]
  - MULTI-ORGAN FAILURE [None]
  - PAIN EXACERBATED [None]
  - REFUSAL OF TREATMENT BY PATIENT [None]
  - RESTLESSNESS [None]
  - TREMOR [None]
